FAERS Safety Report 7521159-3 (Version None)
Quarter: 2011Q2

REPORT INFORMATION
  Report Type: 
  Country: None (occurrence: None)
  Receive Date: 20110603
  Receipt Date: 20101122
  Transmission Date: 20111010
  Serious: Yes (Other)
  Sender: FDA-Public Use
  Company Number: US-BAYER-201042120NA

PATIENT
  Age: 59 Year
  Sex: Female
  Weight: 62.273 kg

DRUGS (7)
  1. ASCORBIC ACID [Concomitant]
  2. LEVOTHYROXINE SODIUM [Concomitant]
     Dates: start: 20020101
  3. ESTRACE [Suspect]
     Indication: VULVOVAGINAL DRYNESS
     Dates: start: 20020101, end: 20071001
  4. LOESTRIN 1.5/30 [Suspect]
     Indication: PRODUCT USED FOR UNKNOWN INDICATION
     Dates: end: 20071001
  5. TOPROL-XL [Concomitant]
     Dates: start: 19980101, end: 20101001
  6. VITAMIN E [Concomitant]
  7. CLIMARA [Suspect]
     Indication: MENOPAUSAL SYMPTOMS
     Route: 062
     Dates: start: 19970101, end: 20071001

REACTIONS (2)
  - BREAST CANCER [None]
  - WEIGHT INCREASED [None]
